FAERS Safety Report 16585208 (Version 1)
Quarter: 2019Q3

REPORT INFORMATION
  Report Type: Spontaneous
  Country: DE (occurrence: DE)
  Receive Date: 20190717
  Receipt Date: 20190717
  Transmission Date: 20191004
  Serious: Yes (Death, Life-Threatening, Hospitalization)
  Sender: FDA-Public Use
  Company Number: DE-TEVA-2019-DE-1077142

PATIENT
  Age: 78 Year
  Sex: Female

DRUGS (15)
  1. FUROSEMIDE. [Suspect]
     Active Substance: FUROSEMIDE
     Dosage: 20 MG, 1-1-0-0
     Route: 065
  2. XIPAMIDE [Suspect]
     Active Substance: XIPAMIDE
     Dosage: 10 MG, 1-0-0-0
     Route: 065
  3. MARCUMAR [Suspect]
     Active Substance: PHENPROCOUMON
     Dosage: 3 MG, ACCORDING TO INR
     Route: 065
  4. METAMIZOL [Concomitant]
     Active Substance: METAMIZOLE SODIUM
     Dosage: NK MG, DEMAND
  5. LEVOTHYROXINE SODIUM. [Concomitant]
     Active Substance: LEVOTHYROXINE SODIUM
     Dosage: 25 MICROGRAM, 1-0-0-0
  6. METOPROLOL. [Concomitant]
     Active Substance: METOPROLOL
     Dosage: 47.5 MG, 1-0-1-0
  7. DULOXETIN [Concomitant]
     Active Substance: DULOXETINE
     Dosage: 30 MG, 1-0-0-0
  8. LEVEMIR [Concomitant]
     Active Substance: INSULIN DETEMIR
     Dosage: 30 IE, 0-0-0-1
  9. ANGOCIN ANTI INFEKT N [Concomitant]
     Dosage: NK MG, 2-2-2-0
  10. NORSPAN 5MIKROGRAMM/H [Concomitant]
     Dosage: 5 MICROGRAM/H, CHANGE 1X/W
  11. INSULIN LISPRO [Concomitant]
     Active Substance: INSULIN LISPRO
     Dosage: NK IE, BY SCHEME
  12. QUETIAPINE. [Concomitant]
     Active Substance: QUETIAPINE
     Dosage: 25 MG, 0-0-0-1
  13. KALINOR-RETARD P 600MG [Concomitant]
     Dosage: 600 MG, 1-0-0-0
  14. AMIODARON [Concomitant]
     Active Substance: AMIODARONE
     Dosage: 200 MG, 1-0-0-0
  15. PANTOPRAZOL [Concomitant]
     Active Substance: PANTOPRAZOLE SODIUM
     Dosage: 40 MG, 0-0-1-0

REACTIONS (4)
  - Acute kidney injury [Unknown]
  - Overdose [Unknown]
  - Anuria [Unknown]
  - Therapeutic drug monitoring analysis not performed [Unknown]
